FAERS Safety Report 11861962 (Version 1)
Quarter: 2015Q4

REPORT INFORMATION
  Report Type: Not Available
  Country: US (occurrence: US)
  Receive Date: 20151222
  Receipt Date: 20151222
  Transmission Date: 20160305
  Serious: Yes (Hospitalization)
  Sender: FDA-Public Use
  Company Number: US-IHEALTH-2015-US-000702

PATIENT
  Age: 70 Year
  Sex: Female
  Weight: 78.02 kg

DRUGS (1)
  1. AZO YEAST [Suspect]
     Active Substance: EUPATORIUM PERFOLIATUM FLOWERING TOP\VISCUM ALBUM LEAF
     Dosage: 1 TABLET
     Route: 048
     Dates: start: 20150901, end: 20150901

REACTIONS (6)
  - Hypoaesthesia oral [Recovered/Resolved]
  - Swollen tongue [Recovered/Resolved]
  - Hypoaesthesia oral [None]
  - Oropharyngeal swelling [Recovered/Resolved]
  - Dysphonia [Recovered/Resolved]
  - Mouth swelling [None]

NARRATIVE: CASE EVENT DATE: 20150901
